FAERS Safety Report 24425875 (Version 1)
Quarter: 2024Q4

REPORT INFORMATION
  Report Type: Report from Study
  Country: US (occurrence: US)
  Receive Date: 20241011
  Receipt Date: 20241011
  Transmission Date: 20250115
  Serious: Yes (Other)
  Sender: ABBVIE
  Company Number: US-ABBVIE-5956764

PATIENT
  Age: 72 Year
  Sex: Male

DRUGS (1)
  1. SKYRIZI [Suspect]
     Active Substance: RISANKIZUMAB-RZAA
     Indication: Psoriasis
     Route: 058
     Dates: start: 20220603

REACTIONS (3)
  - Renal surgery [Recovering/Resolving]
  - Precancerous skin lesion [Recovering/Resolving]
  - Lip discolouration [Unknown]

NARRATIVE: CASE EVENT DATE: 20240901
